FAERS Safety Report 5768264-X (Version None)
Quarter: 2008Q2

REPORT INFORMATION
  Report Type: 
  Country: None (occurrence: None)
  Receive Date: 20080612
  Receipt Date: 20080314
  Transmission Date: 20081010
  Serious: No
  Sender: FDA-Public Use
  Company Number: US-ABBOTT-07P-163-0419603-00

PATIENT
  Sex: Male
  Weight: 107.7 kg

DRUGS (9)
  1. HUMIRA [Suspect]
     Indication: CROHN'S DISEASE
     Route: 058
     Dates: start: 20070924, end: 20070924
  2. HUMIRA [Suspect]
     Route: 058
     Dates: start: 20070906, end: 20070906
  3. HUMIRA [Suspect]
     Route: 058
     Dates: start: 20071008
  4. HUMIRA [Suspect]
     Dosage: LOADING DOSE
     Route: 058
     Dates: start: 20070901
  5. HUMIRA [Suspect]
     Route: 058
     Dates: start: 20070901
  6. ESOMEPRAZOLE MAGNESIUM [Concomitant]
     Indication: GASTROOESOPHAGEAL REFLUX DISEASE
     Route: 048
  7. PREDNISONE TAB [Concomitant]
     Indication: CROHN'S DISEASE
  8. LISINOPRIL [Concomitant]
     Indication: HYPERTENSION
  9. FEXOFENADINE [Concomitant]
     Indication: PREMEDICATION
     Route: 048

REACTIONS (5)
  - ARTHRALGIA [None]
  - DYSPNOEA [None]
  - HOT FLUSH [None]
  - PRURITUS GENERALISED [None]
  - RASH [None]
